FAERS Safety Report 16174267 (Version 1)
Quarter: 2019Q2

REPORT INFORMATION
  Report Type: Spontaneous
  Country: US (occurrence: US)
  Receive Date: 20190408
  Receipt Date: 20190408
  Transmission Date: 20190711
  Serious: Yes (Other)
  Sender: FDA-Public Use
  Company Number: None

PATIENT
  Age: 27 Year
  Sex: Male
  Weight: 81 kg

DRUGS (16)
  1. LAMOTRIGINE. [Concomitant]
     Active Substance: LAMOTRIGINE
  2. NASACORT [Concomitant]
     Active Substance: TRIAMCINOLONE ACETONIDE
  3. SIMPLY SALINE [Concomitant]
  4. NALTREXONE [Suspect]
     Active Substance: NALTREXONE
     Indication: NEUROMYOPATHY
     Dosage: ?          QUANTITY:1 CAPSULE(S);?
     Route: 048
  5. AMLODIPYNE BESYLATE [Concomitant]
  6. DEXEDRINE [Concomitant]
     Active Substance: DEXTROAMPHETAMINE SULFATE
  7. BONINE [Concomitant]
     Active Substance: MECLIZINE HYDROCHLORIDE
  8. NALTREXONE [Suspect]
     Active Substance: NALTREXONE
     Indication: PAIN
     Dosage: ?          QUANTITY:1 CAPSULE(S);?
     Route: 048
  9. EXCEDRIN MIGRAINE [Concomitant]
     Active Substance: ACETAMINOPHEN\ASPIRIN\CAFFEINE
  10. THERATEARS [Concomitant]
     Active Substance: CARBOXYMETHYLCELLULOSE SODIUM
  11. NALTREXONE [Suspect]
     Active Substance: NALTREXONE
     Indication: FIBROMYALGIA
     Dosage: ?          QUANTITY:1 CAPSULE(S);?
     Route: 048
  12. PANTOPRAZOLE [Concomitant]
     Active Substance: PANTOPRAZOLE
  13. GAS-X [Concomitant]
     Active Substance: DIMETHICONE
  14. ACT DRY MOUTH [Concomitant]
  15. CITALOPRAM [Concomitant]
     Active Substance: CITALOPRAM HYDROBROMIDE
  16. ALLEGRA [Concomitant]
     Active Substance: FEXOFENADINE HYDROCHLORIDE

REACTIONS (16)
  - Agitation [None]
  - Tachyphrenia [None]
  - Nausea [None]
  - Anxiety [None]
  - Dizziness [None]
  - Paraesthesia [None]
  - Paranoia [None]
  - Product intolerance [None]
  - Bruxism [None]
  - Hyperhidrosis [None]
  - Diarrhoea [None]
  - Vomiting [None]
  - Change in sustained attention [None]
  - Insomnia [None]
  - Temperature regulation disorder [None]
  - Restlessness [None]

NARRATIVE: CASE EVENT DATE: 20190408
